FAERS Safety Report 24334587 (Version 4)
Quarter: 2025Q2

REPORT INFORMATION
  Report Type: Spontaneous
  Country: US (occurrence: US)
  Receive Date: 20240918
  Receipt Date: 20250416
  Transmission Date: 20250716
  Serious: No
  Sender: SUNOVION
  Company Number: US-SMPA-2024SPA001950AA

PATIENT

DRUGS (2)
  1. ORGOVYX [Suspect]
     Active Substance: RELUGOLIX
     Indication: Prostate cancer
     Route: 048
     Dates: start: 20240423, end: 20240424
  2. ORGOVYX [Suspect]
     Active Substance: RELUGOLIX
     Dosage: 120 MG, QD
     Route: 048
     Dates: start: 20240530

REACTIONS (10)
  - Chills [Recovering/Resolving]
  - Hunger [Recovering/Resolving]
  - Sleep disorder [Recovering/Resolving]
  - Pollakiuria [Recovering/Resolving]
  - Dizziness [Recovering/Resolving]
  - Prostatic specific antigen abnormal [Recovering/Resolving]
  - Constipation [Recovering/Resolving]
  - Hyperhidrosis [Unknown]
  - Diarrhoea [Recovering/Resolving]
  - Therapy interrupted [Unknown]

NARRATIVE: CASE EVENT DATE: 20240101
